FAERS Safety Report 23309602 (Version 2)
Quarter: 2023Q4

REPORT INFORMATION
  Report Type: Spontaneous
  Country: US (occurrence: US)
  Receive Date: 20231218
  Receipt Date: 20231222
  Transmission Date: 20240110
  Serious: No
  Sender: FDA-Public Use
  Company Number: US-BRISTOL-MYERS SQUIBB COMPANY-2023-182056

PATIENT
  Age: 61 Year
  Sex: Male
  Weight: 118.84 kg

DRUGS (2)
  1. POMALYST [Suspect]
     Active Substance: POMALIDOMIDE
     Indication: Plasma cell myeloma
     Route: 048
     Dates: end: 20231212
  2. POMALYST [Suspect]
     Active Substance: POMALIDOMIDE
     Route: 048
     Dates: end: 20231218

REACTIONS (3)
  - Full blood count decreased [Unknown]
  - Body temperature increased [Unknown]
  - Illness [Not Recovered/Not Resolved]
